APPROVED DRUG PRODUCT: ATROPINE (AUTOINJECTOR)
Active Ingredient: ATROPINE
Strength: EQ 2MG SULFATE/0.7ML (EQ 2MG SULFATE/0.7ML)
Dosage Form/Route: SOLUTION;INTRAMUSCULAR
Application: N212319 | Product #001
Applicant: RAFA LABORATORIES LTD
Approved: Jul 9, 2018 | RLD: No | RS: No | Type: DISCN